FAERS Safety Report 4490105-1 (Version None)
Quarter: 2004Q4

REPORT INFORMATION
  Report Type: 
  Country: None (occurrence: None)
  Receive Date: 20041028
  Receipt Date: 20041019
  Transmission Date: 20050328
  Serious: Yes (Death)
  Sender: FDA-Public Use
  Company Number: 2004240176US

PATIENT
  Age: 24 Year
  Sex: Male

DRUGS (2)
  1. XANAX [Suspect]
     Dosage: 1 MG, QD, ORAL
     Route: 048
  2. METHADONE (METHADONE) [Suspect]
     Dates: start: 20040615

REACTIONS (2)
  - COMA [None]
  - FOAMING AT MOUTH [None]
